FAERS Safety Report 20939902 (Version 1)
Quarter: 2022Q2

REPORT INFORMATION
  Report Type: Report from Study
  Country: US (occurrence: US)
  Receive Date: 20220609
  Receipt Date: 20220609
  Transmission Date: 20220720
  Serious: Yes (Other)
  Sender: FDA-Public Use
  Company Number: US-GILEAD-2022-0584879

PATIENT
  Age: 63 Year
  Sex: Male

DRUGS (1)
  1. EMTRICITABINE\TENOFOVIR [Suspect]
     Active Substance: EMTRICITABINE\TENOFOVIR
     Indication: HIV infection
     Dosage: UNK
     Route: 065

REACTIONS (6)
  - Cachexia [Unknown]
  - Hepatitis C [Unknown]
  - Benign prostatic hyperplasia [Unknown]
  - Blood cholesterol [Unknown]
  - Dyslipidaemia [Unknown]
  - Herpes zoster [Unknown]
